FAERS Safety Report 6585445-6 (Version None)
Quarter: 2010Q1

REPORT INFORMATION
  Report Type: 
  Country: None (occurrence: None)
  Receive Date: 20100217
  Receipt Date: 20100209
  Transmission Date: 20100710
  Serious: Yes (Other)
  Sender: FDA-Public Use
  Company Number: B0633945A

PATIENT
  Sex: Male

DRUGS (3)
  1. VENTOLIN [Suspect]
     Indication: RESPIRATORY TRACT INFECTION
     Dosage: 2.5MG FOUR TIMES PER DAY
     Route: 055
     Dates: start: 20081010, end: 20081011
  2. AUGMENTIN [Concomitant]
     Indication: RESPIRATORY TRACT INFECTION
     Route: 048
     Dates: start: 20081008, end: 20081013
  3. FLUTICASONE PROPIONATE [Concomitant]
     Indication: RESPIRATORY TRACT INFECTION
     Route: 055
     Dates: start: 20081010, end: 20081013

REACTIONS (5)
  - CONFUSIONAL STATE [None]
  - PALLOR [None]
  - PERIPHERAL COLDNESS [None]
  - PULSE ABSENT [None]
  - TACHYCARDIA [None]
